FAERS Safety Report 5387008-7 (Version None)
Quarter: 2007Q3

REPORT INFORMATION
  Report Type: 
  Country: None (occurrence: None)
  Receive Date: 20070713
  Receipt Date: 20070702
  Transmission Date: 20080115
  Serious: Yes (Other)
  Sender: FDA-Public Use
  Company Number: DE-PFIZER INC-2007056022

PATIENT
  Age: 69 Year
  Sex: Female

DRUGS (3)
  1. SUTENT [Suspect]
     Indication: LEIOMYOSARCOMA
     Route: 048
  2. INSULIN [Concomitant]
  3. ANTIHYPERTENSIVES [Concomitant]

REACTIONS (6)
  - ANOREXIA [None]
  - CONSTIPATION [None]
  - FAECES PALE [None]
  - GASTROINTESTINAL PAIN [None]
  - MUCOUS MEMBRANE DISORDER [None]
  - TONGUE DISORDER [None]
